FAERS Safety Report 20773068 (Version 5)
Quarter: 2023Q2

REPORT INFORMATION
  Report Type: Spontaneous
  Country: AT (occurrence: AT)
  Receive Date: 20220502
  Receipt Date: 20230619
  Transmission Date: 20230722
  Serious: Yes (Disabling, Other)
  Sender: FDA-Public Use
  Company Number: AT-SA-2022SA138652

PATIENT
  Age: 74 Year
  Sex: Male

DRUGS (19)
  1. LENALIDOMIDE [Suspect]
     Active Substance: LENALIDOMIDE
     Indication: Plasma cell myeloma
     Dates: start: 201511
  2. POMALIDOMIDE [Suspect]
     Active Substance: POMALIDOMIDE
     Indication: Plasma cell myeloma
  3. DEXAMETHASONE [Suspect]
     Active Substance: DEXAMETHASONE
     Indication: Plasma cell myeloma
     Dosage: UNK UNK, QCY
     Dates: start: 2011
  4. DEXAMETHASONE [Suspect]
     Active Substance: DEXAMETHASONE
     Indication: Thoracic vertebral fracture
     Dosage: UNK
     Dates: start: 201511
  5. DEXAMETHASONE [Suspect]
     Active Substance: DEXAMETHASONE
     Indication: Allogenic stem cell transplantation
  6. SARCLISA [Suspect]
     Active Substance: ISATUXIMAB-IRFC
     Indication: Plasma cell myeloma
  7. CARFILZOMIB [Suspect]
     Active Substance: CARFILZOMIB
     Indication: Plasma cell myeloma
  8. BORTEZOMIB [Suspect]
     Active Substance: BORTEZOMIB
     Indication: Thoracic vertebral fracture
     Dosage: UNK UNK, QCY
     Dates: start: 2011
  9. BORTEZOMIB [Suspect]
     Active Substance: BORTEZOMIB
     Indication: Plasma cell myeloma
  10. BORTEZOMIB [Suspect]
     Active Substance: BORTEZOMIB
     Indication: Allogenic stem cell transplantation
  11. CYCLOPHOSPHAMIDE [Suspect]
     Active Substance: CYCLOPHOSPHAMIDE
     Indication: Plasma cell myeloma
     Dosage: UNK UNK, QCY
     Dates: start: 2011
  12. CYCLOPHOSPHAMIDE [Suspect]
     Active Substance: CYCLOPHOSPHAMIDE
     Indication: Thoracic vertebral fracture
  13. CYCLOPHOSPHAMIDE [Suspect]
     Active Substance: CYCLOPHOSPHAMIDE
     Indication: Allogenic stem cell transplantation
  14. NINLARO [Suspect]
     Active Substance: IXAZOMIB CITRATE
     Indication: Plasma cell myeloma
  15. VELCADE [Suspect]
     Active Substance: BORTEZOMIB
     Indication: Allogenic stem cell transplantation
     Dates: start: 2011
  16. VELCADE [Suspect]
     Active Substance: BORTEZOMIB
     Indication: Plasma cell myeloma
  17. VELCADE [Suspect]
     Active Substance: BORTEZOMIB
     Indication: Thoracic vertebral fracture
  18. ASPIRIN [Concomitant]
     Active Substance: ASPIRIN
     Indication: Anticoagulant therapy
     Dosage: UNK
  19. MELPHALAN [Concomitant]
     Active Substance: MELPHALAN
     Indication: Plasma cell myeloma
     Dates: start: 2011

REACTIONS (11)
  - Polyneuropathy [Unknown]
  - Pulmonary hypertension [Unknown]
  - Deep vein thrombosis [Recovered/Resolved]
  - Pulmonary embolism [Unknown]
  - Thrombocytopenia [Unknown]
  - Anaemia [Unknown]
  - Infusion related reaction [Unknown]
  - Nervous system disorder [Unknown]
  - Pneumonia [Unknown]
  - Papilloedema [Unknown]
  - Gait disturbance [Unknown]

NARRATIVE: CASE EVENT DATE: 20200101
